FAERS Safety Report 8739642 (Version 2)
Quarter: 2012Q4

REPORT INFORMATION
  Report Type: 
  Country: US (occurrence: US)
  Receive Date: 20120823
  Receipt Date: 20120927
  Transmission Date: 20130627
  Serious: Yes (Other)
  Sender: FDA-Public Use
  Company Number: US-PFIZER INC-2012205364

PATIENT
  Age: 52 Year
  Sex: Male

DRUGS (2)
  1. LIPITOR [Suspect]
     Indication: HYPERCHOLESTEROLAEMIA
     Dosage: 10 mg, 1x/day
     Route: 048
     Dates: start: 20050127
  2. LIPITOR [Suspect]
     Dosage: 20 mg, 1x/day
     Route: 048
     Dates: end: 20120726

REACTIONS (2)
  - Neuropathy peripheral [Recovering/Resolving]
  - Carnitine decreased [Unknown]
